FAERS Safety Report 6650948-2 (Version None)
Quarter: 2010Q1

REPORT INFORMATION
  Report Type: 
  Country: None (occurrence: None)
  Receive Date: 20100323
  Receipt Date: 20100316
  Transmission Date: 20100710
  Serious: Yes (Other)
  Sender: FDA-Public Use
  Company Number: 2008-183928-NL

PATIENT
  Age: 32 Year
  Sex: Female
  Weight: 108.8633 kg

DRUGS (1)
  1. NUVARING [Suspect]
     Indication: CONTRACEPTION
     Dates: start: 20070901, end: 20071112

REACTIONS (6)
  - ABDOMINAL ABSCESS [None]
  - BACTERIAL INFECTION [None]
  - CONDITION AGGRAVATED [None]
  - MENORRHAGIA [None]
  - MIGRAINE [None]
  - TRANSIENT ISCHAEMIC ATTACK [None]
